FAERS Safety Report 6131794-5 (Version None)
Quarter: 2009Q1

REPORT INFORMATION
  Report Type: 
  Country: None (occurrence: None)
  Receive Date: 20090323
  Receipt Date: 20090311
  Transmission Date: 20090719
  Serious: Yes (Other)
  Sender: FDA-Public Use
  Company Number: ENTC2009-0072

PATIENT
  Age: 81 Year
  Sex: Female

DRUGS (5)
  1. STALEVO 100 [Suspect]
     Indication: PARKINSON'S DISEASE
     Dosage: 150 L/37.5 C/200 E MG TABLET, FOUR TIMES DAILY; 1.5 DF, QD
     Dates: start: 20071201, end: 20090201
  2. STALEVO 100 [Suspect]
     Indication: PARKINSON'S DISEASE
     Dosage: 150 L/37.5 C/200 E MG TABLET, FOUR TIMES DAILY; 1.5 DF, QD
     Dates: start: 20090201
  3. TRYPTANOL [Concomitant]
  4. TAFIL [Concomitant]
  5. TEKAMER [Concomitant]

REACTIONS (3)
  - CONDITION AGGRAVATED [None]
  - GENERAL PHYSICAL HEALTH DETERIORATION [None]
  - TREMOR [None]
